FAERS Safety Report 9215034 (Version 3)
Quarter: 2014Q1

REPORT INFORMATION
  Report Type: Spontaneous
  Country: US (occurrence: US)
  Receive Date: 20130405
  Receipt Date: 20140325
  Transmission Date: 20141002
  Serious: Yes (Other)
  Sender: FDA-Public Use
  Company Number: US-BAYER-2013-041427

PATIENT
  Age: 32 Year
  Sex: Female

DRUGS (12)
  1. YAZ [Suspect]
     Dosage: UNK
     Route: 048
  2. YASMIN [Suspect]
     Dosage: UNK
     Route: 048
  3. LEVOTHYROXINE SODIUM [Concomitant]
     Dosage: 25 ?G, UNK
     Route: 048
  4. ACYCLOVIR [ACICLOVIR] [Concomitant]
     Dosage: 200 MG, UNK
  5. AZITHROMYCIN [Concomitant]
     Dosage: 250 MG, UNK
  6. OXYCODONE W/PARACETAMOL [Concomitant]
     Dosage: 5-500 MG
  7. VARENICLINE TARTRATE [Concomitant]
     Dosage: 1 MG, UNK
  8. ALPRAZOLAM [Concomitant]
     Dosage: 0.5 MG, UNK
     Route: 048
  9. CETIRIZINE [Concomitant]
     Dosage: 10 MG, UNK
     Route: 048
  10. TOPIRAMATE [Concomitant]
     Dosage: 100 MG, TID
     Route: 048
  11. FEXOFENADINE [Concomitant]
     Dosage: 180 MG Q EVERY MORNING
     Route: 048
  12. PAXIL [Concomitant]
     Dosage: 25 MG, UNK
     Route: 048

REACTIONS (8)
  - Gallbladder disorder [None]
  - Cholecystitis [None]
  - Injury [None]
  - Pain [None]
  - Emotional distress [None]
  - Anxiety [None]
  - Anhedonia [None]
  - Fear of disease [None]
